FAERS Safety Report 10494747 (Version 1)
Quarter: 2014Q4

REPORT INFORMATION
  Report Type: Spontaneous
  Country: US (occurrence: None)
  Receive Date: 20141001
  Receipt Date: 20141001
  Transmission Date: 20150528
  Serious: Yes (Hospitalization)
  Sender: FDA-Public Use
  Company Number: SPR-00275

PATIENT
  Age: 45 Year
  Sex: Female

DRUGS (1)
  1. PHENTERMINE [Suspect]
     Active Substance: PHENTERMINE
     Indication: WEIGHT DECREASED
     Dosage: 2-3 TIMES A WEEK FOR ONE YEAR AND 1-2 TIMES A DAY FOR TWO WEEKS PRIOR TO ADMISSION ORAL
     Route: 048

REACTIONS (3)
  - Subarachnoid haemorrhage [None]
  - Heart rate increased [None]
  - Confusional state [None]

NARRATIVE: CASE EVENT DATE: 20140822
